FAERS Safety Report 19844053 (Version 1)
Quarter: 2021Q3

REPORT INFORMATION
  Report Type: Spontaneous
  Country: CZ (occurrence: CZ)
  Receive Date: 20210916
  Receipt Date: 20210916
  Transmission Date: 20211014
  Serious: Yes (Hospitalization, Other)
  Sender: FDA-Public Use
  Company Number: CZ-AMGEN-CZESP2021140255

PATIENT
  Age: 45 Year
  Sex: Female

DRUGS (24)
  1. PROCORALAN [Concomitant]
     Active Substance: IVABRADINE
  2. LYRICA [Concomitant]
     Active Substance: PREGABALIN
  3. ENELBIN [ARNICA MONTANA TINCTURE] [Concomitant]
     Dosage: UNK
  4. STADAMET [Concomitant]
     Active Substance: METFORMIN HYDROCHLORIDE
  5. CALCIUM [Concomitant]
     Active Substance: CALCIUM
     Dosage: 500 UNK, QD
  6. METHOTREXATE. [Concomitant]
     Active Substance: METHOTREXATE
     Indication: SYSTEMIC LUPUS ERYTHEMATOSUS
     Dosage: 15 MILLIGRAM, QWK
  7. AGEN [Concomitant]
     Active Substance: AMLODIPINE BESYLATE
  8. TEZEO [Concomitant]
     Active Substance: TELMISARTAN
  9. LAGOSA [Concomitant]
     Active Substance: DIETARY SUPPLEMENT\HERBALS\MILK THISTLE
  10. TRESIBA [Concomitant]
     Active Substance: INSULIN DEGLUDEC
  11. COVID?19 VACCINE [Concomitant]
     Dosage: UNK
  12. VIGANTOL [COLECALCIFEROL] [Concomitant]
     Active Substance: CHOLECALCIFEROL
     Dosage: 20 DROPS , QWK
  13. MEDROL [Concomitant]
     Active Substance: METHYLPREDNISOLONE
     Indication: SYSTEMIC LUPUS ERYTHEMATOSUS
     Dosage: 8 MILLIGRAM
  14. VEROSPIRON [Concomitant]
     Active Substance: SPIRONOLACTONE
  15. EGILOC [Concomitant]
  16. MILGAMMA [BENFOTIAMINE] [Concomitant]
     Active Substance: BENFOTIAMINE
  17. ANOPYRIN [Concomitant]
     Active Substance: ASPIRIN
  18. LOW MOLECULAR WEIGHT HEPARIN [Concomitant]
     Active Substance: UNSPECIFIED INGREDIENT
     Dosage: UNK
  19. PROLIA [Suspect]
     Active Substance: DENOSUMAB
     Indication: OSTEOPOROSIS
     Dosage: UNK
     Route: 065
     Dates: start: 2015, end: 202004
  20. NOVORAPID [Concomitant]
     Active Substance: INSULIN ASPART
  21. PARALEN [PARACETAMOL] [Concomitant]
  22. FUROLIN [Concomitant]
     Active Substance: NITROFURANTOIN
  23. LANZUL [Concomitant]
     Active Substance: LANSOPRAZOLE
  24. MAGNESIUM [Concomitant]
     Active Substance: MAGNESIUM

REACTIONS (6)
  - Pain [Unknown]
  - Back pain [Unknown]
  - Limb discomfort [Unknown]
  - Rebound effect [Unknown]
  - Thoracic vertebral fracture [Unknown]
  - Lumbar vertebral fracture [Unknown]

NARRATIVE: CASE EVENT DATE: 2017
